FAERS Safety Report 9564006 (Version 2)
Quarter: 2013Q4

REPORT INFORMATION
  Report Type: Spontaneous
  Country: US (occurrence: US)
  Receive Date: 20130928
  Receipt Date: 20131003
  Transmission Date: 20140711
  Serious: Yes (Hospitalization)
  Sender: FDA-Public Use
  Company Number: US-ROCHE-1282525

PATIENT
  Sex: Male

DRUGS (3)
  1. XOLAIR [Suspect]
     Indication: ASTHMA
     Dosage: AT LEAST 3 YEARS AGO
     Route: 058
  2. PULMOZYME [Concomitant]
  3. TOBRAMYCIN [Concomitant]

REACTIONS (2)
  - Dyspnoea [Unknown]
  - Decreased appetite [Unknown]
